APPROVED DRUG PRODUCT: NYSTATIN
Active Ingredient: NYSTATIN
Strength: 100,000 UNITS/GM
Dosage Form/Route: CREAM;TOPICAL
Application: A062949 | Product #001 | TE Code: AT
Applicant: ACTAVIS MID ATLANTIC LLC
Approved: Jun 13, 1988 | RLD: No | RS: No | Type: RX